FAERS Safety Report 4405232-4 (Version None)
Quarter: 2004Q3

REPORT INFORMATION
  Report Type: 
  Country: None (occurrence: None)
  Receive Date: 20040722
  Receipt Date: 20040722
  Transmission Date: 20050211
  Serious: Yes (Other)
  Sender: FDA-Public Use
  Company Number: None

PATIENT
  Age: 59 Year
  Sex: Male
  Weight: 105.6881 kg

DRUGS (13)
  1. LIPITOR [Suspect]
     Indication: TYPE IIA HYPERLIPIDAEMIA
     Dosage: 80 MG DAILY ORAL
     Route: 048
     Dates: start: 20010601, end: 20040713
  2. PROVIGIL [Concomitant]
  3. EFFEXOR [Concomitant]
  4. DALMANE [Concomitant]
  5. ADVAIR DISKUS 100/50 [Concomitant]
  6. RHINOCORT [Concomitant]
  7. COMBIVENT [Concomitant]
  8. TEQUIN [Concomitant]
  9. GUAIFENISIN [Concomitant]
  10. ASTELIN [Concomitant]
  11. VIOXX [Concomitant]
  12. LAMICTAL [Concomitant]
  13. ACULAR [Concomitant]

REACTIONS (17)
  - ABDOMINAL PAIN [None]
  - ARTHRALGIA [None]
  - ASTHENIA [None]
  - ASTHMA [None]
  - BRONCHITIS [None]
  - COUGH [None]
  - DYSURIA [None]
  - HYPERHIDROSIS [None]
  - INFLUENZA LIKE ILLNESS [None]
  - MALAISE [None]
  - MYALGIA [None]
  - PHARYNGITIS [None]
  - PYREXIA [None]
  - RHINITIS [None]
  - SINUSITIS [None]
  - TENDERNESS [None]
  - URTICARIA [None]
